FAERS Safety Report 10017290 (Version 2)
Quarter: 2014Q2

REPORT INFORMATION
  Report Type: Spontaneous
  Country: US (occurrence: US)
  Receive Date: 20140318
  Receipt Date: 20140403
  Transmission Date: 20141212
  Serious: Yes (Other)
  Sender: FDA-Public Use
  Company Number: US-JNJFOC-20140306505

PATIENT
  Age: 72 Year
  Sex: Male

DRUGS (6)
  1. XARELTO [Suspect]
     Indication: CEREBROVASCULAR ACCIDENT PROPHYLAXIS
     Route: 048
     Dates: start: 20130206, end: 20130310
  2. XARELTO [Suspect]
     Indication: ATRIAL FIBRILLATION
     Route: 048
     Dates: start: 20130206, end: 20130310
  3. NORVASC [Concomitant]
     Route: 065
  4. CORDARONE [Concomitant]
     Route: 065
  5. NIACIN [Concomitant]
     Route: 065
  6. GLUCOSAMINE [Concomitant]
     Route: 065

REACTIONS (3)
  - Pharyngeal oedema [Recovered/Resolved]
  - Oropharyngeal pain [Recovered/Resolved]
  - Pain [Recovered/Resolved]
